FAERS Safety Report 13752635 (Version 1)
Quarter: 2017Q3

REPORT INFORMATION
  Report Type: Spontaneous
  Country: US (occurrence: US)
  Receive Date: 20170713
  Receipt Date: 20170713
  Transmission Date: 20171127
  Serious: Yes (Disabling)
  Sender: FDA-Public Use
  Company Number: None

PATIENT
  Age: 51 Year
  Sex: Female
  Weight: 56.7 kg

DRUGS (4)
  1. VITAMIN D [Concomitant]
     Active Substance: CHOLECALCIFEROL
  2. CIPRO [Suspect]
     Active Substance: CIPROFLOXACIN HYDROCHLORIDE
     Indication: URINARY TRACT INFECTION
     Dosage: ?          OTHER STRENGTH:MG;?
  3. TEA [Concomitant]
     Active Substance: TEA LEAF
  4. VITAMIN C [Concomitant]
     Active Substance: ASCORBIC ACID

REACTIONS (6)
  - Pain in extremity [None]
  - Urinary tract infection [None]
  - Arthralgia [None]
  - Rash [None]
  - Musculoskeletal pain [None]
  - Back pain [None]

NARRATIVE: CASE EVENT DATE: 20170713
